FAERS Safety Report 7271934-8 (Version None)
Quarter: 2011Q1

REPORT INFORMATION
  Report Type: 
  Country: None (occurrence: None)
  Receive Date: 20110203
  Receipt Date: 20110131
  Transmission Date: 20110831
  Serious: Yes (Life-Threatening, Hospitalization, Other)
  Sender: FDA-Public Use
  Company Number: US-JNJFOC-20100904506

PATIENT
  Age: 21 Year
  Sex: Male

DRUGS (2)
  1. TRAMADOL [Suspect]
     Indication: ILL-DEFINED DISORDER
     Route: 048
  2. ALPRAZOLAM [Suspect]
     Indication: ILL-DEFINED DISORDER
     Route: 048

REACTIONS (7)
  - OVERDOSE [None]
  - HYPOTHERMIA [None]
  - UNRESPONSIVE TO STIMULI [None]
  - RENAL FAILURE ACUTE [None]
  - RHABDOMYOLYSIS [None]
  - HYPERKALAEMIA [None]
  - HYPOTENSION [None]
